FAERS Safety Report 18742392 (Version 3)
Quarter: 2021Q3

REPORT INFORMATION
  Report Type: Spontaneous
  Country: JP (occurrence: JP)
  Receive Date: 20210114
  Receipt Date: 20210709
  Transmission Date: 20211014
  Serious: Yes (Hospitalization)
  Sender: FDA-Public Use
  Company Number: JP-ALLERGAN-2101612US

PATIENT
  Sex: Female

DRUGS (6)
  1. RESLIN TABLETS 50 [Suspect]
     Active Substance: TRAZODONE HYDROCHLORIDE
     Indication: INSOMNIA
     Dosage: 50 MG
     Route: 048
     Dates: start: 20201221
  2. SILECE [Suspect]
     Active Substance: FLUNITRAZEPAM
     Indication: INSOMNIA
     Dosage: 2 MG, QHS
     Route: 048
     Dates: start: 20201202, end: 20201213
  3. LEXOTAN [Suspect]
     Active Substance: BROMAZEPAM
     Indication: ANXIETY
     Dosage: 5 MG, QPM
     Route: 048
     Dates: start: 20200930, end: 20201213
  4. ASENAPINE MALEATE ? BP [Suspect]
     Active Substance: ASENAPINE MALEATE
     Indication: INSOMNIA
     Dosage: 5 MG, QHS
     Route: 060
     Dates: start: 20201209, end: 20201209
  5. ASENAPINE MALEATE ? BP [Suspect]
     Active Substance: ASENAPINE MALEATE
     Indication: ANXIETY
  6. RESLIN TABLETS 50 [Suspect]
     Active Substance: TRAZODONE HYDROCHLORIDE
     Indication: DEPRESSION
     Dosage: 50 MG, QHS
     Route: 048
     Dates: start: 20200930, end: 20201213

REACTIONS (2)
  - Off label use [Unknown]
  - Viral rash [Recovering/Resolving]

NARRATIVE: CASE EVENT DATE: 20201209
